FAERS Safety Report 23283840 (Version 2)
Quarter: 2024Q1

REPORT INFORMATION
  Report Type: Spontaneous
  Country: US (occurrence: US)
  Receive Date: 20231211
  Receipt Date: 20240205
  Transmission Date: 20240410
  Serious: Yes (Other)
  Sender: FDA-Public Use
  Company Number: US-BRISTOL-MYERS SQUIBB COMPANY-2023-178428

PATIENT
  Age: 88 Year
  Sex: Male
  Weight: 78.3 kg

DRUGS (20)
  1. REVLIMID [Suspect]
     Active Substance: LENALIDOMIDE
     Indication: Plasma cell myeloma
     Dosage: DAILY X21 DAYS, EVERY 28 DAYS
     Route: 048
     Dates: start: 20231109
  2. REVLIMID [Suspect]
     Active Substance: LENALIDOMIDE
     Dosage: DAILY X 14 DAYS
     Route: 048
     Dates: end: 202401
  3. VITAMIN D3 [Concomitant]
     Active Substance: CHOLECALCIFEROL
  4. ONDANSETRON [Concomitant]
     Active Substance: ONDANSETRON
  5. CALMOSEPTINE [MENTHOL;ZINC OXIDE] [Concomitant]
  6. TYLENOL [Concomitant]
     Active Substance: ACETAMINOPHEN
  7. PROBIOTIC ACIDOPHILUS [LACTOBACILLUS ACIDOPHILUS] [Concomitant]
  8. FLUTICASONE PROPIONATE [Concomitant]
     Active Substance: FLUTICASONE PROPIONATE
  9. ATORVASTATIN [Concomitant]
     Active Substance: ATORVASTATIN
  10. DEBROX [CELECOXIB] [Concomitant]
  11. SENNA PLUS [SENNA ALEXANDRINA] [Concomitant]
  12. LEVOTHYROXINE [Concomitant]
     Active Substance: LEVOTHYROXINE\LEVOTHYROXINE SODIUM
  13. VITAMINS NOS [Concomitant]
     Active Substance: VITAMINS
  14. MIRALAX [Concomitant]
     Active Substance: POLYETHYLENE GLYCOL 3350
  15. ELIQUIS [Concomitant]
     Active Substance: APIXABAN
  16. ACYCLOVIR [Concomitant]
     Active Substance: ACYCLOVIR
  17. DEXAMETHASONE [Concomitant]
     Active Substance: DEXAMETHASONE
  18. ZINC OXIDE [Concomitant]
     Active Substance: ZINC OXIDE
     Dosage: 20% OINTMENT 28.4GM
  19. ONDANSETRON [Concomitant]
     Active Substance: ONDANSETRON
  20. PROAIR HFA [Concomitant]
     Active Substance: ALBUTEROL SULFATE
     Dosage: ORAL INH (200 PFS) 8.5G

REACTIONS (3)
  - Neutropenia [Unknown]
  - COVID-19 [Unknown]
  - Off label use [Unknown]

NARRATIVE: CASE EVENT DATE: 20240101
